FAERS Safety Report 5651334-4 (Version None)
Quarter: 2008Q1

REPORT INFORMATION
  Report Type: 
  Country: None (occurrence: None)
  Receive Date: 20080305
  Receipt Date: 20080227
  Transmission Date: 20080703
  Serious: Yes (Other)
  Sender: FDA-Public Use
  Company Number: JP-JNJFOC-20080300441

PATIENT
  Sex: Female

DRUGS (3)
  1. RISPERDAL [Suspect]
     Route: 048
  2. RISPERDAL [Suspect]
     Route: 048
  3. RISPERDAL [Suspect]
     Indication: DRUG USE FOR UNKNOWN INDICATION
     Dosage: PREVIOUS DOSAGE, UNKNOWN DATES
     Route: 048

REACTIONS (4)
  - AGITATION [None]
  - HEAD DEFORMITY [None]
  - PELVIC DEFORMITY [None]
  - SHOULDER DEFORMITY [None]
